FAERS Safety Report 9505604 (Version 1)
Quarter: 2013Q1

REPORT INFORMATION
  Report Type: Spontaneous
  Country: US (occurrence: None)
  Receive Date: 20130221
  Receipt Date: 20130221
  Transmission Date: 20140127
  Serious: Yes (Other)
  Sender: FDA-Public Use
  Company Number: 1203USA00226

PATIENT
  Sex: Male

DRUGS (5)
  1. PRINIVIL [Suspect]
     Route: 048
  2. ANTIVERT [Suspect]
  3. INDOCIN [Suspect]
     Route: 048
  4. ALLOPURINOL [Suspect]
  5. MEVACOR [Suspect]
     Route: 048
     Dates: start: 2008

REACTIONS (4)
  - Renal failure [None]
  - Loss of consciousness [None]
  - Dizziness [None]
  - Nervous system disorder [None]
